FAERS Safety Report 8085022 (Version 4)
Quarter: 2013Q3

REPORT INFORMATION
  Report Type: Report from Study
  Country: GB (occurrence: GB)
  Receive Date: 20110810
  Receipt Date: 20130819
  Transmission Date: 20140515
  Serious: Yes (Other)
  Sender: FDA-Public Use
  Company Number: GB-B.I. PHARMACEUTICALS,INC./RIDGEFIELD-2011-BP-15309BP

PATIENT
  Age: 0 Day
  Sex: Female
  Weight: 2.34 kg

DRUGS (2)
  1. VIRAMUNE [Suspect]
     Indication: EXPOSURE DURING PREGNANCY
     Dosage: 400 MG
     Route: 064
     Dates: start: 20070614
  2. EPZICOM [Concomitant]
     Indication: EXPOSURE DURING PREGNANCY
     Route: 064
     Dates: start: 20070614

REACTIONS (6)
  - Trisomy 21 [Unknown]
  - Ventricular septal defect [Unknown]
  - Premature baby [Unknown]
  - Low birth weight baby [Unknown]
  - Congenital skin dimples [Unknown]
  - Finger deformity [Unknown]
